FAERS Safety Report 8061570-8 (Version None)
Quarter: 2012Q1

REPORT INFORMATION
  Report Type: 
  Country: None (occurrence: None)
  Receive Date: 20120122
  Receipt Date: 20120113
  Transmission Date: 20120608
  Serious: Yes (Hospitalization, Other)
  Sender: FDA-Public Use
  Company Number: PHHY2011AU109243

PATIENT
  Sex: Female

DRUGS (4)
  1. GILENYA [Suspect]
     Indication: MULTIPLE SCLEROSIS
     Dosage: 0.5 MG, DAILY
     Route: 048
     Dates: start: 20110502
  2. RAMIPRIL [Concomitant]
     Dosage: 2.5 MG, DAILY
  3. RAMIPRIL [Concomitant]
     Dosage: 5 MG, DAILY
  4. KARVEA [Concomitant]
     Dosage: 300 MG, UNK

REACTIONS (13)
  - CONTUSION [None]
  - FALL [None]
  - HAEMORRHAGE [None]
  - ECZEMA EYELIDS [None]
  - CONVULSION [None]
  - MALAISE [None]
  - BLOOD PRESSURE INCREASED [None]
  - HEADACHE [None]
  - DYSPNOEA [None]
  - SUBDURAL HAEMATOMA [None]
  - INFLUENZA [None]
  - CONJUNCTIVITIS [None]
  - BACK PAIN [None]
